FAERS Safety Report 8175741-3 (Version None)
Quarter: 2012Q1

REPORT INFORMATION
  Report Type: 
  Country: None (occurrence: None)
  Receive Date: 20120301
  Receipt Date: 20120223
  Transmission Date: 20120608
  Serious: Yes (Life-Threatening)
  Sender: FDA-Public Use
  Company Number: SI-ELI_LILLY_AND_COMPANY-SI201201006026

PATIENT
  Sex: Female

DRUGS (8)
  1. PLAVIX [Concomitant]
     Dosage: 75 MG, UNKNOWN
  2. GLUCOPHAGE [Concomitant]
     Dosage: 1000 MG, BID
  3. TERTENSIF SR [Concomitant]
     Dosage: 1.5 MG, UNKNOWN
  4. IRBESARTAN [Concomitant]
     Dosage: 300 MG, UNKNOWN
  5. BISOPROLOL FUMARATE [Concomitant]
     Dosage: 2.5 MG, UNKNOWN
  6. CRESTOR [Concomitant]
     Dosage: 10 MG, UNKNOWN
  7. BYETTA [Suspect]
     Dosage: 10 UG, UNK
     Dates: end: 20120118
  8. BYETTA [Suspect]
     Indication: TYPE 2 DIABETES MELLITUS
     Dosage: 10 UG, BID
     Route: 058
     Dates: start: 20090101

REACTIONS (4)
  - DYSPNOEA [None]
  - VIRAL INFECTION [None]
  - NAUSEA [None]
  - GASTRIC DISORDER [None]
